FAERS Safety Report 4490754-0 (Version None)
Quarter: 2004Q4

REPORT INFORMATION
  Report Type: 
  Country: None (occurrence: None)
  Receive Date: 20041027
  Receipt Date: 20041019
  Transmission Date: 20050328
  Serious: Yes (Hospitalization)
  Sender: FDA-Public Use
  Company Number: STA-AE-04-MTX-501

PATIENT
  Age: 53 Year
  Sex: Female

DRUGS (11)
  1. RHEUMATREX [Suspect]
     Indication: RHEUMATOID ARTHRITIS
     Dosage: SEE IMAGE
     Route: 048
     Dates: start: 20010124, end: 20011113
  2. RHEUMATREX [Suspect]
     Indication: RHEUMATOID ARTHRITIS
     Dosage: SEE IMAGE
     Route: 048
     Dates: start: 20011114
  3. BREDININ (MIZORIBINE, ) [Suspect]
     Indication: RHEUMATOID ARTHRITIS
     Dosage: 100 MG 1X PER 1 DAY, ORAL
     Route: 048
     Dates: start: 20020507
  4. METHOTREXATE [Suspect]
     Indication: RHEUMATOID ARTHRITIS
     Dosage: SEE IMAGE
     Route: 048
     Dates: end: 20001002
  5. METHOTREXATE [Suspect]
     Indication: RHEUMATOID ARTHRITIS
     Dosage: SEE IMAGE
     Route: 048
     Dates: start: 20001003, end: 20010123
  6. PREDNISOLONE [Suspect]
     Indication: RHEUMATOID ARTHRITIS
     Dosage: ORAL
     Route: 048
     Dates: start: 20021105
  7. REMICADE [Suspect]
     Indication: RHEUMATOID ARTHRITIS
     Dosage: 3 MG/KG 1X PER 1 DAY, INTRAVENOUS DRIP
     Route: 041
     Dates: start: 20040219, end: 20040219
  8. REMICADE [Suspect]
     Indication: RHEUMATOID ARTHRITIS
     Dosage: 3 MG/KG 1X PER 1 DAY, INTRAVENOUS DRIP
     Route: 041
     Dates: start: 20040303, end: 20040303
  9. REMICADE [Suspect]
     Indication: RHEUMATOID ARTHRITIS
     Dosage: 3 MG/KG 1X PER 1 DAY, INTRAVENOUS DRIP
     Route: 041
     Dates: start: 20040331, end: 20040331
  10. VOLTAREN [Concomitant]
  11. LANSOPRAZOLE [Concomitant]

REACTIONS (4)
  - ARTHRITIS BACTERIAL [None]
  - IMPLANT SITE INFECTION [None]
  - STAPHYLOCOCCAL INFECTION [None]
  - SURGICAL PROCEDURE REPEATED [None]
